FAERS Safety Report 5857546-9 (Version None)
Quarter: 2008Q3

REPORT INFORMATION
  Report Type: 
  Country: None (occurrence: None)
  Receive Date: 20080826
  Receipt Date: 20080820
  Transmission Date: 20090109
  Serious: Yes (Death, Hospitalization)
  Sender: FDA-Public Use
  Company Number: PHHO2008DE09629

PATIENT
  Sex: Male
  Weight: 87 kg

DRUGS (14)
  1. MYCOPHENOLIC ACID [Suspect]
     Indication: SYSTEMIC LUPUS ERYTHEMATOSUS
     Dosage: 720 MG, BID
     Route: 048
     Dates: start: 20080528, end: 20080722
  2. LISINOPRIL [Concomitant]
     Indication: HYPERTENSION
  3. LEVOTHYROXINE SODIUM [Concomitant]
     Indication: HYPERTHYROIDISM
  4. PREDNISON [Concomitant]
  5. BONDIOL [Concomitant]
     Indication: OSTEOPOROSIS
  6. ALLOPURINOL [Concomitant]
     Indication: HYPERURICAEMIA
  7. PREDNISOLON [Concomitant]
     Indication: SYSTEMIC LUPUS ERYTHEMATOSUS
  8. CALCIUM [Concomitant]
     Indication: OSTEOPOROSIS
  9. SALBUTAMOL [Concomitant]
     Indication: CHRONIC OBSTRUCTIVE PULMONARY DISEASE
  10. BUDESONIDE [Concomitant]
     Indication: CHRONIC OBSTRUCTIVE PULMONARY DISEASE
  11. CLOPIDOGREL [Concomitant]
     Indication: ARTERIOSCLEROSIS
  12. FLUVASTATIN [Concomitant]
     Indication: HYPERCHOLESTEROLAEMIA
  13. FUROSEMIDE [Concomitant]
     Indication: HYPERTENSION
  14. RANITIDINE [Concomitant]
     Indication: PROPHYLAXIS

REACTIONS (14)
  - ABDOMINAL OPERATION [None]
  - ABDOMINAL PAIN [None]
  - ASPHYXIA [None]
  - ASPIRATION [None]
  - CARDIAC ARREST [None]
  - CONSTIPATION [None]
  - DIARRHOEA [None]
  - DYSPNOEA [None]
  - ILEUS PARALYTIC [None]
  - LAPAROTOMY [None]
  - POST PROCEDURAL PNEUMONIA [None]
  - PULMONARY EMBOLISM [None]
  - RESPIRATORY FAILURE [None]
  - RESUSCITATION [None]
